FAERS Safety Report 7580373-1 (Version None)
Quarter: 2011Q2

REPORT INFORMATION
  Report Type: 
  Country: None (occurrence: None)
  Receive Date: 20110629
  Receipt Date: 20110624
  Transmission Date: 20111010
  Serious: Yes (Other)
  Sender: FDA-Public Use
  Company Number: GB-ROCHE-785965

PATIENT
  Age: 47 Year
  Sex: Male

DRUGS (15)
  1. CIMETIDINE [Interacting]
     Route: 042
  2. LOPERAMIDE [Interacting]
     Route: 065
  3. WARFARIN SODIUM [Interacting]
     Route: 065
  4. VITAMIN K TAB [Interacting]
     Route: 065
  5. GRANISETRON [Interacting]
     Route: 042
  6. PACLITAXEL [Interacting]
     Route: 042
  7. ERLOTINIB HYDROCHLORIDE [Interacting]
     Dosage: DRUG WITH DRAWAN
     Route: 048
  8. CARBOPLATIN [Interacting]
     Route: 042
  9. CITALOPRAM HYDROBROMIDE [Interacting]
     Route: 065
  10. OXYCODONE HCL [Interacting]
     Indication: PAIN
     Route: 065
  11. BEVACIZUMAB [Suspect]
     Route: 065
  12. DEXAMETHASONE [Interacting]
     Route: 065
  13. DIPHENHYDRAMINE HCL [Interacting]
     Route: 065
  14. ALPRAZOLAM [Interacting]
     Route: 065
  15. DARBEPOETIN ALFA [Interacting]
     Route: 065

REACTIONS (7)
  - INTERNATIONAL NORMALISED RATIO INCREASED [None]
  - CONTUSION [None]
  - DRUG INTERACTION [None]
  - HAEMATOMA [None]
  - RASH [None]
  - DIARRHOEA [None]
  - SWELLING [None]
